FAERS Safety Report 13183795 (Version 2)
Quarter: 2017Q1

REPORT INFORMATION
  Report Type: Report from Study
  Country: None (occurrence: CO)
  Receive Date: 20170203
  Receipt Date: 20170328
  Transmission Date: 20170428
  Serious: Yes (Hospitalization, Other)
  Sender: FDA-Public Use
  Company Number: CO-ABBVIE-17P-036-1861340-00

PATIENT
  Age: 58 Year
  Sex: Male
  Weight: 75 kg

DRUGS (3)
  1. CLONIDINE. [Concomitant]
     Active Substance: CLONIDINE
     Indication: PRODUCT USED FOR UNKNOWN INDICATION
  2. ZEMPLAR [Suspect]
     Active Substance: PARICALCITOL
     Indication: HYPERPARATHYROIDISM SECONDARY
     Dosage: POST DIALYSIS
     Route: 042
     Dates: start: 20141227, end: 20161128
  3. MINOXIDIL. [Concomitant]
     Active Substance: MINOXIDIL
     Indication: PRODUCT USED FOR UNKNOWN INDICATION

REACTIONS (1)
  - Parathyroidectomy [Recovering/Resolving]

NARRATIVE: CASE EVENT DATE: 20161215
